FAERS Safety Report 15117973 (Version 1)
Quarter: 2018Q3

REPORT INFORMATION
  Report Type: Spontaneous
  Country: CN (occurrence: CN)
  Receive Date: 20180706
  Receipt Date: 20180706
  Transmission Date: 20181010
  Serious: Yes (Other)
  Sender: FDA-Public Use
  Company Number: CN-009507513-1806CHN012304

PATIENT
  Age: 30 Year
  Sex: Female

DRUGS (7)
  1. METHYLPREDNISOLONE SODIUM SUCCINATE. [Concomitant]
     Active Substance: METHYLPREDNISOLONE SODIUM SUCCINATE
     Indication: MALIGNANT ATROPHIC PAPULOSIS
     Dosage: 40 MG, BID
     Route: 042
  2. GLOBULIN, IMMUNE [Concomitant]
     Active Substance: HUMAN IMMUNOGLOBULIN G
     Indication: MALIGNANT ATROPHIC PAPULOSIS
     Dosage: 400 MG/KG, QD
     Route: 042
  3. ALPROSTADIL. [Concomitant]
     Active Substance: ALPROSTADIL
     Indication: MALIGNANT ATROPHIC PAPULOSIS
     Dosage: 10 MICROGRAM, QD
     Route: 042
  4. DALTEPARIN SODIUM [Concomitant]
     Active Substance: DALTEPARIN SODIUM
     Indication: MALIGNANT ATROPHIC PAPULOSIS
     Dosage: 2500 IU. QD
     Route: 058
  5. BAYASPIRIN [Concomitant]
     Active Substance: ASPIRIN
     Indication: MALIGNANT ATROPHIC PAPULOSIS
     Dosage: 100 MG, QD
  6. TEICOPLANIN [Concomitant]
     Active Substance: TEICOPLANIN
     Indication: INFECTION
     Dosage: 0.4 G, BID
     Route: 042
  7. IMIPENEM AND CILASTATIN [Suspect]
     Active Substance: CILASTATIN SODIUM\IMIPENEM
     Indication: INFECTION
     Dosage: 1 G, BID
     Route: 042

REACTIONS (1)
  - Drug ineffective [Unknown]
